FAERS Safety Report 23314519 (Version 1)
Quarter: 2023Q4

REPORT INFORMATION
  Report Type: Spontaneous
  Country: US (occurrence: US)
  Receive Date: 20231219
  Receipt Date: 20231219
  Transmission Date: 20240109
  Serious: Yes (Hospitalization)
  Sender: FDA-Public Use
  Company Number: US-TEVA-VS-3136106

PATIENT
  Age: 73 Year

DRUGS (3)
  1. LINEZOLID [Suspect]
     Active Substance: LINEZOLID
     Indication: Enterobacter infection
     Route: 065
  2. TEDIZOLID [Concomitant]
     Active Substance: TEDIZOLID
     Indication: Enterobacter infection
     Route: 065
  3. CIPROFLOXACIN [Concomitant]
     Active Substance: CIPROFLOXACIN
     Indication: Enterobacter infection
     Route: 065

REACTIONS (2)
  - Lactic acidosis [Recovered/Resolved]
  - Thrombocytopenia [Recovered/Resolved]
